FAERS Safety Report 5356982-7 (Version None)
Quarter: 2007Q2

REPORT INFORMATION
  Report Type: 
  Country: None (occurrence: None)
  Receive Date: 20070612
  Receipt Date: 20070612
  Transmission Date: 20071010
  Serious: Yes (Other)
  Sender: FDA-Public Use
  Company Number: None

PATIENT
  Sex: Female
  Weight: 68.4932 kg

DRUGS (2)
  1. PROAIR HFA [Suspect]
     Indication: ASTHMA
     Dosage: 90 MG Q4HOURS INHALED
     Route: 055
     Dates: start: 20070401
  2. PROAIR HFA [Suspect]
     Indication: HYPERSENSITIVITY
     Dosage: 90 MG Q4HOURS INHALED
     Route: 055
     Dates: start: 20070401

REACTIONS (2)
  - DEVICE MALFUNCTION [None]
  - DRUG INEFFECTIVE [None]
